FAERS Safety Report 19478736 (Version 1)
Quarter: 2021Q2

REPORT INFORMATION
  Report Type: Spontaneous
  Country: US (occurrence: US)
  Receive Date: 20210630
  Receipt Date: 20210630
  Transmission Date: 20210717
  Serious: Yes (Other)
  Sender: FDA-Public Use
  Company Number: US-PFIZER INC-2021741853

PATIENT
  Age: 48 Year
  Sex: Female
  Weight: 86.18 kg

DRUGS (1)
  1. GENOTROPIN [Suspect]
     Active Substance: SOMATROPIN
     Indication: HYPOTHALAMO-PITUITARY DISORDER
     Dosage: UNK

REACTIONS (4)
  - Fatigue [Unknown]
  - Arthralgia [Unknown]
  - Brain injury [Unknown]
  - Hypoaesthesia [Unknown]
